FAERS Safety Report 7095831-6 (Version None)
Quarter: 2010Q4

REPORT INFORMATION
  Report Type: 
  Country: None (occurrence: None)
  Receive Date: 20101101
  Receipt Date: 20101018
  Transmission Date: 20110411
  Serious: Yes (Other)
  Sender: FDA-Public Use
  Company Number: IT-GDP-10409200

PATIENT
  Sex: Male

DRUGS (1)
  1. EPIDUO [Suspect]
     Indication: ACNE
     Dosage: (1 DF QD TOPICAL)
     Route: 061
     Dates: start: 20100901, end: 20100901

REACTIONS (1)
  - ANGIOEDEMA [None]
